FAERS Safety Report 20606442 (Version 2)
Quarter: 2022Q3

REPORT INFORMATION
  Report Type: Report from Study
  Country: CA (occurrence: CA)
  Receive Date: 20220317
  Receipt Date: 20220912
  Transmission Date: 20221027
  Serious: Yes (Other)
  Sender: FDA-Public Use
  Company Number: CA-JNJFOC-20220327316

PATIENT
  Age: 20 Year
  Sex: Female
  Weight: 53.3 kg

DRUGS (2)
  1. STELARA [Suspect]
     Active Substance: USTEKINUMAB
     Indication: Crohn^s disease
     Dosage: EXPIRY DATE: 31-JAN-2025
     Route: 058
     Dates: start: 20200214
  2. STELARA [Suspect]
     Active Substance: USTEKINUMAB

REACTIONS (7)
  - Loss of consciousness [Recovered/Resolved]
  - Abortion spontaneous [Recovered/Resolved]
  - Exposure during pregnancy [Recovered/Resolved]
  - Wound [Unknown]
  - Fall [Unknown]
  - Contusion [Unknown]
  - Asthenia [Unknown]

NARRATIVE: CASE EVENT DATE: 20220110
